FAERS Safety Report 8300553-7 (Version None)
Quarter: 2012Q2

REPORT INFORMATION
  Report Type: 
  Country: None (occurrence: None)
  Receive Date: 20120417
  Receipt Date: 20120405
  Transmission Date: 20120825
  Serious: Yes (Other)
  Sender: FDA-Public Use
  Company Number: DSA_56069_2012

PATIENT
  Age: 46 Year
  Sex: Male

DRUGS (3)
  1. XENAZINE [Suspect]
     Indication: HUNTINGTON'S DISEASE
     Dosage: (37.5 MG BID ORAL) ; (25 MG BID ORAL) ; (37.5 MG BID ORAL)
     Route: 048
     Dates: start: 20120301
  2. XENAZINE [Suspect]
     Indication: HUNTINGTON'S DISEASE
     Dosage: (37.5 MG BID ORAL) ; (25 MG BID ORAL) ; (37.5 MG BID ORAL)
     Route: 048
     Dates: end: 20120201
  3. XENAZINE [Suspect]
     Indication: HUNTINGTON'S DISEASE
     Dosage: (37.5 MG BID ORAL) ; (25 MG BID ORAL) ; (37.5 MG BID ORAL)
     Route: 048
     Dates: start: 20120201, end: 20120301

REACTIONS (8)
  - CHOKING SENSATION [None]
  - DROOLING [None]
  - ANXIETY [None]
  - MUSCLE RIGIDITY [None]
  - PYREXIA [None]
  - AGITATION [None]
  - MUSCLE SPASTICITY [None]
  - SALIVARY HYPERSECRETION [None]
